FAERS Safety Report 4469817-1 (Version None)
Quarter: 2004Q4

REPORT INFORMATION
  Report Type: 
  Country: None (occurrence: None)
  Receive Date: 20041008
  Receipt Date: 20041002
  Transmission Date: 20050328
  Serious: Yes (Life-Threatening)
  Sender: FDA-Public Use
  Company Number: GB-GLAXOSMITHKLINE-B0346982A

PATIENT
  Age: 87 Year
  Sex: Female

DRUGS (1)
  1. ZINACEF [Suspect]
     Route: 042
     Dates: start: 20040912

REACTIONS (1)
  - HYPOTENSION [None]
